FAERS Safety Report 5392084-1 (Version None)
Quarter: 2007Q3

REPORT INFORMATION
  Report Type: 
  Country: None (occurrence: None)
  Receive Date: 20070717
  Receipt Date: 20070717
  Transmission Date: 20080115
  Serious: No
  Sender: FDA-Public Use
  Company Number: None

PATIENT
  Sex: Female
  Weight: 112.4921 kg

DRUGS (1)
  1. AMLODIPINE [Suspect]
     Dosage: #60 ONE TIME QD PO
     Route: 048

REACTIONS (1)
  - STOMACH DISCOMFORT [None]
